FAERS Safety Report 7287886-0 (Version None)
Quarter: 2011Q1

REPORT INFORMATION
  Report Type: 
  Country: None (occurrence: None)
  Receive Date: 20110211
  Receipt Date: 20101203
  Transmission Date: 20110831
  Serious: No
  Sender: FDA-Public Use
  Company Number: A0897661A

PATIENT
  Age: 67 Year
  Sex: Male

DRUGS (3)
  1. IBUPROFEN [Concomitant]
  2. TREXIMET [Suspect]
     Indication: CLUSTER HEADACHE
     Dosage: 1TAB PER DAY
     Route: 048
     Dates: start: 20101201
  3. CORICIDIN [Concomitant]

REACTIONS (2)
  - DRUG INEFFECTIVE [None]
  - ABDOMINAL PAIN UPPER [None]
